FAERS Safety Report 20216516 (Version 1)
Quarter: 2021Q4

REPORT INFORMATION
  Report Type: Other
  Country: DE (occurrence: DE)
  Receive Date: 20211222
  Receipt Date: 20211222
  Transmission Date: 20220303
  Serious: Yes (Hospitalization)
  Sender: FDA-Public Use
  Company Number: DE-MACLEODS PHARMACEUTICALS US LTD-MAC2021033771

PATIENT

DRUGS (3)
  1. ARIPIPRAZOLE [Suspect]
     Active Substance: ARIPIPRAZOLE
     Indication: Product used for unknown indication
     Dosage: 10 MILLIGRAM, QD (1-0-0-0)
     Route: 065
  2. MILNACIPRAN [Suspect]
     Active Substance: MILNACIPRAN
     Indication: Product used for unknown indication
     Dosage: 50 MILLIGRAM, QD (1-0-0-0)
     Route: 065
  3. PREGABALIN [Concomitant]
     Active Substance: PREGABALIN
     Indication: Product used for unknown indication
     Dosage: 75 MILLIGRAM, BID (1-0-1-0)
     Route: 065

REACTIONS (6)
  - Balance disorder [Unknown]
  - Depressed mood [Unknown]
  - General physical health deterioration [Unknown]
  - Condition aggravated [Unknown]
  - Urinary incontinence [Unknown]
  - Anxiety [Unknown]
